FAERS Safety Report 10454987 (Version 2)
Quarter: 2014Q3

REPORT INFORMATION
  Report Type: Spontaneous
  Country: US (occurrence: US)
  Receive Date: 20140915
  Receipt Date: 20140915
  Transmission Date: 20150326
  Serious: Yes (Hospitalization, Other)
  Sender: FDA-Public Use
  Company Number: US-ABBVIE-14P-163-1275380-00

PATIENT
  Sex: Female

DRUGS (3)
  1. LOTREL [Concomitant]
     Active Substance: AMLODIPINE BESYLATE\BENAZEPRIL HYDROCHLORIDE
     Indication: HYPERTENSION
  2. PRILOSEC [Concomitant]
     Active Substance: OMEPRAZOLE MAGNESIUM
     Indication: PRODUCT USED FOR UNKNOWN INDICATION
  3. HUMIRA [Suspect]
     Active Substance: ADALIMUMAB
     Indication: PSORIASIS

REACTIONS (34)
  - Paraesthesia [Not Recovered/Not Resolved]
  - Muscle spasms [Unknown]
  - Cerebrovascular accident [Unknown]
  - Loss of proprioception [Unknown]
  - Asthenia [Recovering/Resolving]
  - Sinus arrhythmia [Unknown]
  - Myopathy [Unknown]
  - Oedema peripheral [Unknown]
  - Demyelination [Unknown]
  - Coordination abnormal [Recovering/Resolving]
  - Decreased activity [Recovering/Resolving]
  - Balance disorder [Recovering/Resolving]
  - Myelitis transverse [Unknown]
  - Pollakiuria [Unknown]
  - Spinal cord disorder [Unknown]
  - Sensory loss [Recovering/Resolving]
  - Urge incontinence [Unknown]
  - Abdominal distension [Unknown]
  - Vitamin B12 decreased [Unknown]
  - Activities of daily living impaired [Recovering/Resolving]
  - Hypokinesia [Unknown]
  - Fatigue [Unknown]
  - Ataxia [Unknown]
  - Gait disturbance [Unknown]
  - Pain [Unknown]
  - Neuralgia [Unknown]
  - Motor dysfunction [Unknown]
  - Hypoaesthesia [Not Recovered/Not Resolved]
  - Abasia [Recovered/Resolved]
  - Hemiplegia [Recovered/Resolved with Sequelae]
  - Exercise tolerance decreased [Recovering/Resolving]
  - Mobility decreased [Recovering/Resolving]
  - Fall [Unknown]
  - Arthralgia [Unknown]
